FAERS Safety Report 20310697 (Version 1)
Quarter: 2022Q1

REPORT INFORMATION
  Report Type: Spontaneous
  Country: US (occurrence: None)
  Receive Date: 20220107
  Receipt Date: 20220107
  Transmission Date: 20220424
  Serious: Yes (Other)
  Sender: FDA-Public Use
  Company Number: None

PATIENT
  Age: 9 Year
  Sex: Female
  Weight: 54.7 kg

DRUGS (6)
  1. PRIVIGEN [Suspect]
     Active Substance: HUMAN IMMUNOGLOBULIN G
     Indication: Immunodeficiency
     Route: 042
  2. CALCIUM CARBONATE [Concomitant]
     Active Substance: CALCIUM CARBONATE
  3. docusate senna [Concomitant]
  4. ENOXAPARIN [Concomitant]
     Active Substance: ENOXAPARIN
  5. MELATONIN [Concomitant]
     Active Substance: MELATONIN
  6. FAMOTIDINE [Concomitant]
     Active Substance: FAMOTIDINE

REACTIONS (7)
  - Pruritus [None]
  - Urticaria [None]
  - Hypertension [None]
  - Nausea [None]
  - Headache [None]
  - Infusion related reaction [None]
  - Therapy non-responder [None]

NARRATIVE: CASE EVENT DATE: 20211222
